FAERS Safety Report 6186068-3 (Version None)
Quarter: 2009Q2

REPORT INFORMATION
  Report Type: 
  Country: None (occurrence: None)
  Receive Date: 20090507
  Receipt Date: 20090507
  Transmission Date: 20091009
  Serious: Yes (Other)
  Sender: FDA-Public Use
  Company Number: None

PATIENT
  Age: 62 Year
  Sex: Male
  Weight: 75.7507 kg

DRUGS (1)
  1. LAMOTRIGINE [Suspect]
     Indication: MAJOR DEPRESSION
     Dosage: 100 MG TID PO
     Route: 048
     Dates: start: 20090411, end: 20090423

REACTIONS (8)
  - ABDOMINAL PAIN [None]
  - ACNE [None]
  - MALAISE [None]
  - PRURITUS [None]
  - PYREXIA [None]
  - RASH ERYTHEMATOUS [None]
  - RASH MACULAR [None]
  - SCROTAL DISORDER [None]
